FAERS Safety Report 14704439 (Version 2)
Quarter: 2018Q3

REPORT INFORMATION
  Report Type: Report from Study
  Country: CA (occurrence: CA)
  Receive Date: 20180402
  Receipt Date: 20180813
  Transmission Date: 20181010
  Serious: Yes (Death, Other)
  Sender: FDA-Public Use
  Company Number: CA-BAYER-2018-055935

PATIENT
  Age: 18 Year
  Sex: Female

DRUGS (8)
  1. ISONIAZIDE [Concomitant]
     Active Substance: ISONIAZID
     Dosage: UNK
  2. PARACETAMOL/ CAFFEINE [Suspect]
     Active Substance: ACETAMINOPHEN\CAFFEINE
     Indication: COMPLETED SUICIDE
     Dosage: 40 DF, UNK
     Route: 048
  3. QUETIAPINE. [Suspect]
     Active Substance: QUETIAPINE
     Indication: COMPLETED SUICIDE
     Dosage: 25 MG, QD
     Route: 048
  4. ALCOHOL. [Suspect]
     Active Substance: ALCOHOL
     Indication: COMPLETED SUICIDE
     Dosage: UNK
     Route: 048
  5. ATOMOXETINE. [Concomitant]
     Active Substance: ATOMOXETINE HYDROCHLORIDE
  6. ASPIRIN. [Suspect]
     Active Substance: ASPIRIN
     Indication: COMPLETED SUICIDE
     Dosage: 15 DF, UNK
  7. QUETIAPINE. [Suspect]
     Active Substance: QUETIAPINE
     Indication: COMPLETED SUICIDE
     Dosage: 500 MG, QD
     Route: 048
  8. CITALOPRAM [Concomitant]
     Active Substance: CITALOPRAM HYDROBROMIDE
     Dosage: UNK

REACTIONS (22)
  - Cardiac arrest [Fatal]
  - Agitation [Fatal]
  - Pleural effusion [Fatal]
  - Liver injury [Fatal]
  - Myalgia [Fatal]
  - Face oedema [Fatal]
  - Nausea [Fatal]
  - Pericardial effusion [Fatal]
  - Treatment noncompliance [Fatal]
  - Cardiac failure [Fatal]
  - Hepatic failure [Fatal]
  - Overdose [Fatal]
  - Hepatitis [Fatal]
  - Encephalopathy [Fatal]
  - Hepatic congestion [Fatal]
  - Multiple organ dysfunction syndrome [Fatal]
  - Oedema peripheral [Fatal]
  - Oxygen saturation decreased [Fatal]
  - Seizure [Fatal]
  - Completed suicide [Fatal]
  - Myocarditis [Fatal]
  - Toxicity to various agents [Fatal]
